FAERS Safety Report 17178676 (Version 1)
Quarter: 2019Q4

REPORT INFORMATION
  Report Type: Spontaneous
  Country: US (occurrence: US)
  Receive Date: 20191219
  Receipt Date: 20191219
  Transmission Date: 20200122
  Serious: Yes (Hospitalization, Other)
  Sender: FDA-Public Use
  Company Number: US-AMGEN-USASP2019207599

PATIENT
  Age: 34 Week
  Sex: Male

DRUGS (1)
  1. ABP 215 [Suspect]
     Active Substance: BEVACIZUMAB-AWWB
     Indication: RETINOPATHY OF PREMATURITY
     Dosage: UNK

REACTIONS (5)
  - Vasogenic cerebral oedema [Recovering/Resolving]
  - Pneumonia klebsiella [Unknown]
  - Hypertension [Recovering/Resolving]
  - Cerebral haemorrhage [Unknown]
  - Off label use [Unknown]
